FAERS Safety Report 5023254-X (Version None)
Quarter: 2006Q2

REPORT INFORMATION
  Report Type: 
  Country: None (occurrence: None)
  Receive Date: 20060428
  Receipt Date: 20060119
  Transmission Date: 20061013
  Serious: No
  Sender: FDA-Public Use
  Company Number: 012095

PATIENT
  Age: 65 Year
  Sex: Male

DRUGS (1)
  1. PRIALT [Suspect]
     Indication: NEURALGIA
     Dosage: 0.08 UG, ONCE/HOUR, INTRATHECAL
     Route: 037

REACTIONS (2)
  - NERVOUSNESS [None]
  - PAIN [None]
